FAERS Safety Report 5665161-5 (Version None)
Quarter: 2008Q1

REPORT INFORMATION
  Report Type: 
  Country: None (occurrence: None)
  Receive Date: 20080314
  Receipt Date: 20080307
  Transmission Date: 20080703
  Serious: Yes (Other)
  Sender: FDA-Public Use
  Company Number: US-GENENTECH-257370

PATIENT
  Sex: Male
  Weight: 84.4 kg

DRUGS (4)
  1. BEVACIZUMAB [Suspect]
     Indication: PROSTATE CANCER
     Dosage: 10 MG/KG, D1, Q35D
     Dates: start: 20071205, end: 20080109
  2. BEVACIZUMAB [Suspect]
     Dosage: 15 MG/KG, D15, Q35D
     Dates: start: 20071219
  3. SATRAPLATIN [Concomitant]
     Indication: PROSTATE CANCER
     Dosage: 80 MG/M2, D 1-5, Q35D
     Route: 048
     Dates: start: 20071205
  4. PREDNISONE TAB [Concomitant]
     Indication: PROSTATE CANCER
     Dosage: 5 MG, BID, Q35D
     Route: 048
     Dates: start: 20071205

REACTIONS (1)
  - PULMONARY EMBOLISM [None]
